FAERS Safety Report 5144500-8 (Version None)
Quarter: 2006Q4

REPORT INFORMATION
  Report Type: 
  Country: None (occurrence: None)
  Receive Date: 20061031
  Receipt Date: 20061027
  Transmission Date: 20070319
  Serious: Yes (Hospitalization)
  Sender: FDA-Public Use
  Company Number: 805#1#2006-00103

PATIENT
  Age: 89 Year
  Sex: Female

DRUGS (1)
  1. PROSTANDIN                    (ALPROSTADIL (PAOD)) [Suspect]
     Indication: ARTERIOSCLEROSIS OBLITERANS
     Dosage: 20 CG (20 MCG 1 IN 1 DAY (S)) INTRAVENOUS DRIP
     Route: 041
     Dates: end: 20061025

REACTIONS (2)
  - CARDIAC FAILURE [None]
  - CONDITION AGGRAVATED [None]
